FAERS Safety Report 8836504 (Version 2)
Quarter: 2012Q4

REPORT INFORMATION
  Report Type: 
  Country: US (occurrence: US)
  Receive Date: 20121011
  Receipt Date: 20121205
  Transmission Date: 20130627
  Serious: No
  Sender: FDA-Public Use
  Company Number: US-ASTRAZENECA-2012SE77514

PATIENT
  Age: 65 Year
  Sex: Female

DRUGS (12)
  1. CAPRELSA [Suspect]
     Route: 048
     Dates: start: 20120401
  2. AMLODIPINE [Concomitant]
  3. COMPAZINE [Concomitant]
  4. HYDROCODONE [Concomitant]
  5. LISINOPRIL-HYDROCHLORATHIAZIDE [Concomitant]
  6. METFORMIN [Concomitant]
  7. MOBIC [Concomitant]
  8. OMEPRAZOLE [Concomitant]
  9. POTASSIUM [Concomitant]
  10. SIMVASTATIN [Concomitant]
  11. SYNTHROID [Concomitant]
  12. LISINOPRIL [Concomitant]

REACTIONS (3)
  - Dyspepsia [Unknown]
  - Pruritus [Unknown]
  - Rash [Unknown]
